FAERS Safety Report 9680019 (Version 3)
Quarter: 2013Q4

REPORT INFORMATION
  Report Type: Spontaneous
  Country: DE (occurrence: DE)
  Receive Date: 20131110
  Receipt Date: 20131120
  Transmission Date: 20140711
  Serious: Yes (Other)
  Sender: FDA-Public Use
  Company Number: DE-AMGEN-DEUSP2013077449

PATIENT
  Age: 28 Year
  Sex: Female
  Weight: 55 kg

DRUGS (2)
  1. NEUPOGEN [Suspect]
     Indication: AGRANULOCYTOSIS
     Dosage: 600 MUG, QWK
     Route: 058
  2. FEMIBION                           /07499601/ [Concomitant]
     Indication: PROPHYLAXIS
     Dosage: 0.4 MG, QD
     Route: 048
     Dates: start: 20081223, end: 20090903

REACTIONS (4)
  - Cholestasis [Unknown]
  - Premature labour [Recovered/Resolved]
  - Caesarean section [Recovered/Resolved]
  - Peroneal muscular atrophy [Unknown]
